FAERS Safety Report 11771870 (Version 1)
Quarter: 2015Q4

REPORT INFORMATION
  Report Type: Spontaneous
  Country: US (occurrence: US)
  Receive Date: 20151124
  Receipt Date: 20151124
  Transmission Date: 20160304
  Serious: No
  Sender: FDA-Public Use
  Company Number: US-PFIZER INC-2015406058

PATIENT
  Sex: Female

DRUGS (5)
  1. VALIUM [Suspect]
     Active Substance: DIAZEPAM
  2. PROPOXYPHENE. [Suspect]
     Active Substance: PROPOXYPHENE
  3. CODEINE [Suspect]
     Active Substance: CODEINE
     Dosage: UNK
     Route: 065
  4. ASPIRIN (E.C.) [Suspect]
     Active Substance: ASPIRIN
  5. ADVIL [Suspect]
     Active Substance: IBUPROFEN
     Dosage: UNK
     Route: 065

REACTIONS (1)
  - Drug hypersensitivity [Not Recovered/Not Resolved]
